FAERS Safety Report 6375872-4 (Version None)
Quarter: 2009Q3

REPORT INFORMATION
  Report Type: 
  Country: None (occurrence: None)
  Receive Date: 20090921
  Receipt Date: 20090902
  Transmission Date: 20100115
  Serious: Yes (Hospitalization)
  Sender: FDA-Public Use
  Company Number: B0528823A

PATIENT
  Sex: Male

DRUGS (7)
  1. PAXIL [Suspect]
     Indication: MAJOR DEPRESSION
     Dosage: 40 MG / PER DAY / ORAL
     Route: 048
     Dates: start: 20080610, end: 20080623
  2. RANITIDINE HYDROCHLORIDE [Concomitant]
  3. BROTIZOLAM [Concomitant]
  4. PURSENNID [Concomitant]
  5. MAGNESIUM OXIDE [Concomitant]
  6. POLYCARBOPHIL CALCIUM [Concomitant]
  7. CLOMIPRAMINE HCL [Concomitant]

REACTIONS (1)
  - INAPPROPRIATE ANTIDIURETIC HORMONE SECRETION [None]
